FAERS Safety Report 10161189 (Version 2)
Quarter: 2014Q2

REPORT INFORMATION
  Report Type: Report from Study
  Country: US (occurrence: US)
  Receive Date: 20140508
  Receipt Date: 20140620
  Transmission Date: 20141212
  Serious: Yes (Death, Hospitalization, Other)
  Sender: FDA-Public Use
  Company Number: US-GILEAD-2014-0101541

PATIENT
  Age: 28 Year
  Sex: Female

DRUGS (14)
  1. AZTREONAM LYSINE [Suspect]
     Indication: CYSTIC FIBROSIS
     Dosage: 75 MG, TID
     Route: 055
     Dates: start: 20130406
  2. PROVENTIL                          /00139501/ [Concomitant]
     Dosage: 2.5 MG, QID
     Route: 055
  3. FOSAMAX [Concomitant]
     Dosage: 70 MG, Q1WK
     Route: 048
  4. ZITHROMAX [Concomitant]
     Dosage: 500 MG, QOD (THREE TIMES A WEEK)
     Route: 048
  5. VITAMIN D3 [Concomitant]
     Dosage: 2000 DF (UNITS), QD
     Route: 048
  6. PULMOZYME [Concomitant]
     Indication: CYSTIC FIBROSIS LUNG
     Dosage: 2.5 MG, BID
     Route: 055
  7. IRON                               /00023503/ [Concomitant]
     Dosage: 325 MG, BID
     Route: 048
  8. ADVAIR [Concomitant]
     Dosage: 1 DF (PUFF), BID
     Route: 055
  9. ATROVENT [Concomitant]
     Dosage: 500 ?G, QID
     Route: 055
  10. PANCREAZE                          /00150201/ [Concomitant]
     Dosage: 5 DF (CAPSULES), TID WITH MEALS
     Route: 048
  11. PANCREAZE                          /00150201/ [Concomitant]
     Dosage: 4 DF (CAPSULES), WITH SNACKS
     Route: 048
  12. MULTIVITAMIN                       /00097801/ [Concomitant]
     Dosage: 2 DF (CAPSULES), QD
     Route: 048
  13. PERCOCET                           /00867901/ [Concomitant]
     Indication: PAIN
     Dosage: 1 DF (TABLET), PRN (EVERY 4-HOURS)
     Route: 048
  14. ASCORBIC ACID [Concomitant]
     Indication: CYSTIC FIBROSIS
     Dosage: 250 MG, BID
     Route: 048

REACTIONS (8)
  - Respiratory failure [Fatal]
  - Pseudomonal sepsis [Fatal]
  - Multiple-drug resistance [Fatal]
  - Renal failure acute [Fatal]
  - Multi-organ failure [Fatal]
  - Acute respiratory distress syndrome [Unknown]
  - Infective pulmonary exacerbation of cystic fibrosis [Unknown]
  - Pneumothorax [Recovered/Resolved]
